FAERS Safety Report 21983050 (Version 3)
Quarter: 2023Q4

REPORT INFORMATION
  Report Type: Spontaneous
  Country: US (occurrence: US)
  Receive Date: 20230213
  Receipt Date: 20231019
  Transmission Date: 20240109
  Serious: No
  Sender: FDA-Public Use
  Company Number: US-TAKEDA-2023TUS015231

PATIENT
  Sex: Female
  Weight: 86 kg

DRUGS (4)
  1. VYVANSE [Suspect]
     Active Substance: LISDEXAMFETAMINE DIMESYLATE
     Indication: Attention deficit hyperactivity disorder
     Dosage: 60 MILLIGRAM, QD
     Route: 065
     Dates: start: 2009
  2. VYVANSE [Suspect]
     Active Substance: LISDEXAMFETAMINE DIMESYLATE
     Dosage: 50 MILLIGRAM
     Route: 065
  3. LEVOTHYROXINE [Concomitant]
     Active Substance: LEVOTHYROXINE
     Indication: Thyroid therapy
  4. CELECOXIB [Concomitant]
     Active Substance: CELECOXIB

REACTIONS (7)
  - Increased appetite [Unknown]
  - Hunger [Unknown]
  - Migraine [Unknown]
  - Insurance issue [Unknown]
  - Product availability issue [Unknown]
  - Dizziness [Unknown]
  - Product dose omission issue [Unknown]
